FAERS Safety Report 12977895 (Version 1)
Quarter: 2016Q4

REPORT INFORMATION
  Report Type: Spontaneous
  Country: US (occurrence: US)
  Receive Date: 20161123
  Receipt Date: 20161123
  Transmission Date: 20170207
  Serious: No
  Sender: FDA-Public Use
  Company Number: None

PATIENT
  Age: 81 Year
  Sex: Female

DRUGS (2)
  1. ADCIRCA [Suspect]
     Active Substance: TADALAFIL
     Indication: PULMONARY ARTERIAL HYPERTENSION
  2. ADCIRCA [Suspect]
     Active Substance: TADALAFIL
     Indication: TYPE 2 DIABETES MELLITUS

REACTIONS (1)
  - Urticaria [None]

NARRATIVE: CASE EVENT DATE: 20161026
